FAERS Safety Report 6910705-6 (Version None)
Quarter: 2010Q3

REPORT INFORMATION
  Report Type: 
  Country: None (occurrence: None)
  Receive Date: 20100806
  Receipt Date: 20100729
  Transmission Date: 20110219
  Serious: Yes (Life-Threatening, Hospitalization)
  Sender: FDA-Public Use
  Company Number: BE-PFIZER INC-2010091657

PATIENT
  Age: 73 Year
  Sex: Female
  Weight: 45 kg

DRUGS (4)
  1. MEDROL [Suspect]
     Indication: DERMATOMYOSITIS
     Dosage: 2 MG, 1X/DAY
     Route: 048
     Dates: start: 20060201
  2. ASAFLOW [Concomitant]
     Dosage: 80 MG, 1X/DAY
     Route: 048
  3. LANOXIN [Concomitant]
     Dosage: 0.25 MG, 1X/DAY
     Route: 048
  4. ALENDRONATE SODIUM [Concomitant]
     Dosage: 70 MG, WEEKLY
     Route: 048

REACTIONS (2)
  - METASTASES TO BONE [None]
  - SMALL CELL LUNG CANCER STAGE UNSPECIFIED [None]
